FAERS Safety Report 5122874-1 (Version None)
Quarter: 2006Q4

REPORT INFORMATION
  Report Type: 
  Country: None (occurrence: None)
  Receive Date: 20061009
  Receipt Date: 20060925
  Transmission Date: 20070319
  Serious: Yes (Other)
  Sender: FDA-Public Use
  Company Number: PHFR2006GB02885

PATIENT
  Age: 55 Year
  Sex: Female
  Weight: 80 kg

DRUGS (4)
  1. TERBINAFINE [Suspect]
     Indication: FUNGAL INFECTION
     Dosage: 250MG / DAY
     Route: 048
     Dates: start: 20060904, end: 20060905
  2. ACETAMINOPHEN W/ CODEINE [Concomitant]
     Indication: PAIN
     Route: 048
     Dates: start: 20060830
  3. FLUTICASONE PROPIONATE [Concomitant]
  4. SALBUTAMOL [Concomitant]

REACTIONS (3)
  - DYSGEUSIA [None]
  - DYSPNOEA [None]
  - PANIC REACTION [None]
